FAERS Safety Report 11857937 (Version 4)
Quarter: 2017Q2

REPORT INFORMATION
  Report Type: Spontaneous
  Country: BR (occurrence: BR)
  Receive Date: 20151222
  Receipt Date: 20170508
  Transmission Date: 20170829
  Serious: Yes (Other)
  Sender: FDA-Public Use
  Company Number: BR-JNJFOC-20151215237

PATIENT
  Sex: Female
  Weight: 58 kg

DRUGS (2)
  1. SIMPONI [Suspect]
     Active Substance: GOLIMUMAB
     Indication: RHEUMATOID ARTHRITIS
     Route: 058
     Dates: start: 20140418
  2. ARAVA [Concomitant]
     Active Substance: LEFLUNOMIDE
     Route: 065

REACTIONS (5)
  - Arthralgia [Unknown]
  - Respiratory disorder [Recovering/Resolving]
  - Fatigue [Recovering/Resolving]
  - Visual impairment [Not Recovered/Not Resolved]
  - Drug ineffective [Unknown]
